FAERS Safety Report 8168181-4 (Version None)
Quarter: 2012Q1

REPORT INFORMATION
  Report Type: 
  Country: None (occurrence: None)
  Receive Date: 20120227
  Receipt Date: 20120223
  Transmission Date: 20120608
  Serious: Yes (Death, Other)
  Sender: FDA-Public Use
  Company Number: PHHY2012TR009980

PATIENT
  Sex: Female
  Weight: 77 kg

DRUGS (6)
  1. ZOLEDRONOC ACID [Suspect]
     Route: 042
     Dates: start: 20111121
  2. ATENOLOL [Concomitant]
     Dosage: 50 MG, UNK
  3. DIAMICRON [Concomitant]
  4. LEVOTIRON [Concomitant]
  5. CALCIUM SANDOZ [Concomitant]
  6. CORASPIN [Concomitant]

REACTIONS (9)
  - DEATH [None]
  - PARAESTHESIA [None]
  - VERTIGO [None]
  - BACK PAIN [None]
  - FATIGUE [None]
  - FEELING ABNORMAL [None]
  - TREMOR [None]
  - PAIN [None]
  - AORTIC DILATATION [None]
